FAERS Safety Report 9940913 (Version 1)
Quarter: 2014Q1

REPORT INFORMATION
  Report Type: Spontaneous
  Country: FR (occurrence: FR)
  Receive Date: 20140303
  Receipt Date: 20140303
  Transmission Date: 20141002
  Serious: Yes (Life-Threatening, Hospitalization)
  Sender: FDA-Public Use
  Company Number: FR-B.I. PHARMACEUTICALS,INC./RIDGEFIELD-2014-BI-08900FF

PATIENT
  Age: 61 Year
  Sex: Female

DRUGS (7)
  1. SIFROL [Suspect]
     Indication: PARKINSON^S DISEASE
     Dosage: 2.6 MG
     Route: 048
     Dates: end: 20131028
  2. MODOPAR [Suspect]
     Indication: PARKINSON^S DISEASE
     Dosage: 15625 MG
     Route: 048
     Dates: end: 20131025
  3. CLOZAPINE [Suspect]
     Indication: PARKINSON^S DISEASE
     Dosage: 750 MG
     Route: 048
  4. STALEVO [Suspect]
     Indication: PARKINSON^S DISEASE
     Dosage: 12500 MG
     Route: 048
     Dates: end: 20131025
  5. CELECTOL [Suspect]
     Indication: HYPERTENSION
     Dosage: 3000 MG
     Route: 048
     Dates: end: 20131025
  6. IDARAC 200 MG [Suspect]
     Indication: PAIN
     Dosage: 8000 MG
     Route: 048
     Dates: end: 20131025
  7. STALEVO 150MG/37.5MG/200 MG [Suspect]
     Indication: PARKINSON^S DISEASE
     Dosage: 14100 MG
     Route: 048
     Dates: end: 20131025

REACTIONS (3)
  - Coma [Recovered/Resolved]
  - Toxicity to various agents [Recovered/Resolved]
  - Toxicity to various agents [Recovered/Resolved]
